FAERS Safety Report 24971591 (Version 1)
Quarter: 2025Q1

REPORT INFORMATION
  Report Type: Spontaneous
  Country: EG (occurrence: EG)
  Receive Date: 20250214
  Receipt Date: 20250214
  Transmission Date: 20250409
  Serious: Yes (Death, Hospitalization, Other)
  Sender: EMD SERONO INC
  Company Number: EG-Merck Healthcare KGaA-2025006912

PATIENT
  Sex: Male

DRUGS (1)
  1. REBIF [Suspect]
     Active Substance: INTERFERON BETA-1A
     Indication: Multiple sclerosis

REACTIONS (4)
  - Death neonatal [Fatal]
  - Premature baby [Recovered/Resolved]
  - Hospitalisation [Recovered/Resolved]
  - Foetal exposure during pregnancy [Recovered/Resolved]
